FAERS Safety Report 4874915-4 (Version None)
Quarter: 2006Q1

REPORT INFORMATION
  Report Type: 
  Country: None (occurrence: None)
  Receive Date: 20060105
  Receipt Date: 20051228
  Transmission Date: 20060701
  Serious: Yes (Death, Hospitalization)
  Sender: FDA-Public Use
  Company Number: 2005RR-01406

PATIENT
  Age: 72 Year
  Sex: Female

DRUGS (10)
  1. METFORMIN HCL [Suspect]
     Indication: DIABETES MELLITUS NON-INSULIN-DEPENDENT
  2. ENALAPRIL MALEATE [Suspect]
  3. VERAPAMIL HYDROCHLORIDE [Concomitant]
  4. FUROSEMIDE [Concomitant]
  5. PREDNISONE [Concomitant]
  6. TOLBUTAMIDE [Concomitant]
  7. ALBUTEROL [Concomitant]
  8. IPRATROPIUM BROMIDE [Concomitant]
  9. TERFENADINE [Concomitant]
  10. WARFARIN SODIUM [Concomitant]

REACTIONS (6)
  - CHRONIC OBSTRUCTIVE PULMONARY DISEASE [None]
  - GASTROINTESTINAL HAEMORRHAGE [None]
  - HYPOTENSION [None]
  - LACTIC ACIDOSIS [None]
  - METABOLIC ACIDOSIS [None]
  - RENAL FAILURE [None]
